FAERS Safety Report 12412692 (Version 2)
Quarter: 2016Q2

REPORT INFORMATION
  Report Type: Spontaneous
  Country: IT (occurrence: IT)
  Receive Date: 20160527
  Receipt Date: 20160603
  Transmission Date: 20160815
  Serious: Yes (Other)
  Sender: FDA-Public Use
  Company Number: IT-BRISTOL-MYERS SQUIBB COMPANY-BMS-2016-039979

PATIENT
  Age: 71 Year
  Sex: Male

DRUGS (2)
  1. ETOPOSIDE PHOSPHATE [Suspect]
     Active Substance: ETOPOSIDE PHOSPHATE
     Indication: TRANSITIONAL CELL CARCINOMA
     Dosage: UNK, QCYCLE; 75 MG/MQ ON DAY 1 OF THE 3 WEEK CYCLE
     Route: 042
  2. CISPLATIN. [Suspect]
     Active Substance: CISPLATIN
     Indication: TRANSITIONAL CELL CARCINOMA
     Dosage: UNK, QCYCLE; 100 MG/MQ ON DAYS 1 TO 3 EVERY 3 WEEKS
     Route: 042

REACTIONS (5)
  - Thrombocytopenia [Unknown]
  - Off label use [Unknown]
  - Nephropathy toxic [Unknown]
  - Anaemia [Unknown]
  - Nausea [Unknown]
